FAERS Safety Report 5096612-5 (Version None)
Quarter: 2006Q3

REPORT INFORMATION
  Report Type: 
  Country: None (occurrence: None)
  Receive Date: 20060830
  Receipt Date: 20060817
  Transmission Date: 20061208
  Serious: Yes (Other)
  Sender: FDA-Public Use
  Company Number: 2006102612

PATIENT
  Sex: Female

DRUGS (1)
  1. SOLU-MEDROL [Suspect]
     Indication: MULTIPLE SCLEROSIS
     Dosage: 1500 MG (1500 MG, 1 IN 1 15 D)
     Dates: start: 19990101

REACTIONS (8)
  - CHILLS [None]
  - COLOUR BLINDNESS [None]
  - DIZZINESS [None]
  - EUPHORIC MOOD [None]
  - NAUSEA [None]
  - OEDEMA PERIPHERAL [None]
  - PYREXIA [None]
  - TACHYCARDIA [None]
